FAERS Safety Report 7093981-1 (Version None)
Quarter: 2010Q4

REPORT INFORMATION
  Report Type: 
  Country: None (occurrence: None)
  Receive Date: 20101102
  Receipt Date: 20100929
  Transmission Date: 20110411
  Serious: No
  Sender: FDA-Public Use
  Company Number: 017378

PATIENT
  Sex: Male

DRUGS (15)
  1. KEPPRA [Suspect]
     Indication: PARTIAL SEIZURES
     Dosage: (1000 MG ONCE PLUS 500 MG ONCE), (500 MG BID) (500 MG QD)
     Dates: start: 20100813, end: 20100801
  2. KEPPRA [Suspect]
     Indication: PARTIAL SEIZURES
     Dosage: (1000 MG ONCE PLUS 500 MG ONCE), (500 MG BID) (500 MG QD)
     Dates: start: 20100814, end: 20100822
  3. KEPPRA [Suspect]
     Indication: PARTIAL SEIZURES
     Dosage: (1000 MG ONCE PLUS 500 MG ONCE), (500 MG BID) (500 MG QD)
     Dates: start: 20100823
  4. VITAMIN D [Concomitant]
  5. VITAMIN C /00008001/ [Concomitant]
  6. LOVAZA [Concomitant]
  7. METFORMIN [Concomitant]
  8. LYRICA [Concomitant]
  9. VITAMIN B-12 [Concomitant]
  10. NEXIUM /01479303/ [Concomitant]
  11. SAW PALMETTO /00833501/ [Concomitant]
  12. ZOCOR [Concomitant]
  13. TERAZOSIN HCL [Concomitant]
  14. MELATONIN [Concomitant]
  15. FUROSEMIDE [Concomitant]

REACTIONS (4)
  - DROOLING [None]
  - DYSARTHRIA [None]
  - MUSCULAR WEAKNESS [None]
  - SOMNOLENCE [None]
